FAERS Safety Report 10679649 (Version 2)
Quarter: 2014Q4

REPORT INFORMATION
  Report Type: Spontaneous
  Country: JP (occurrence: JP)
  Receive Date: 20141229
  Receipt Date: 20141229
  Transmission Date: 20150529
  Serious: Yes (Death, Hospitalization, Other)
  Sender: FDA-Public Use
  Company Number: JP-BAYER-200914329BYL

PATIENT
  Age: 55 Year
  Sex: Male
  Weight: 64 kg

DRUGS (21)
  1. NEXAVAR [Suspect]
     Active Substance: SORAFENIB
     Indication: HEPATOCELLULAR CARCINOMA
     Dosage: 400 MG/DAY
     Route: 048
     Dates: end: 20121025
  2. RIZE [Concomitant]
     Active Substance: CLOTIAZEPAM
     Indication: MOOD ALTERED
     Dosage: 10 MG, PRN
     Route: 048
     Dates: start: 20120426
  3. PROMAC [POLAPREZINC] [Concomitant]
     Active Substance: POLAPREZINC
     Dosage: 75 MG, BID
     Route: 048
     Dates: start: 20120810, end: 20121219
  4. URSO [Concomitant]
     Active Substance: URSODIOL
     Dosage: 200 MG, TID
     Route: 048
     Dates: start: 20051028, end: 20121219
  5. CYTOTEC [Concomitant]
     Active Substance: MISOPROSTOL
     Dosage: 200 ?G, TID
     Route: 048
     Dates: start: 20120810, end: 20121219
  6. ZOMETA [Concomitant]
     Active Substance: ZOLEDRONIC ACID
     Dosage: UNK
     Route: 041
     Dates: start: 20091015, end: 20121204
  7. NEXAVAR [Suspect]
     Active Substance: SORAFENIB
     Indication: HEPATOCELLULAR CARCINOMA
     Dosage: 400 MG, BID
     Route: 048
     Dates: start: 20091009
  8. MUCOSTA [Concomitant]
     Active Substance: REBAMIPIDE
     Dosage: 100 MG, TID
     Route: 048
     Dates: start: 20120816, end: 20121219
  9. LOXOPROFEN [Concomitant]
     Active Substance: LOXOPROFEN
     Dosage: 60 MG, TID
     Route: 048
     Dates: start: 20120109, end: 20121219
  10. LIVACT [Concomitant]
     Active Substance: AMINO ACIDS
     Dosage: 4.15 G, TID
     Route: 048
     Dates: start: 20051031, end: 20121219
  11. GASTROM [Concomitant]
     Active Substance: ECABET
     Dosage: 1000 MG, BID
     Route: 048
     Dates: start: 20120827, end: 20121219
  12. LASIX [Concomitant]
     Active Substance: FUROSEMIDE
     Dosage: 20 MG, OM
     Route: 048
     Dates: start: 20120810, end: 20130104
  13. TAKEPRON [Concomitant]
     Active Substance: LANSOPRAZOLE
     Dosage: 15 MG, BID
     Route: 048
     Dates: start: 20100729, end: 20130104
  14. NEXAVAR [Suspect]
     Active Substance: SORAFENIB
     Indication: HEPATOCELLULAR CARCINOMA
     Dosage: DAILY DOSE 800 MG
     Route: 048
     Dates: start: 200910
  15. NEXAVAR [Suspect]
     Active Substance: SORAFENIB
     Indication: HEPATOCELLULAR CARCINOMA
     Dosage: 400 MG/DAY
     Route: 048
     Dates: start: 20091008
  16. ALDACTONE [Concomitant]
     Active Substance: SPIRONOLACTONE
     Dosage: 50 MG, OM
     Route: 048
     Dates: start: 20120811, end: 20130104
  17. LENDORMIN DAINIPPO [Concomitant]
     Active Substance: BROTIZOLAM
     Indication: INSOMNIA
     Dosage: 0.25 MG, PRN
     Route: 048
     Dates: start: 20120510, end: 20121212
  18. NEXAVAR [Suspect]
     Active Substance: SORAFENIB
     Indication: HEPATOCELLULAR CARCINOMA
     Dosage: 400 MG/DAY
     Route: 048
     Dates: start: 20091025
  19. NEXAVAR [Suspect]
     Active Substance: SORAFENIB
     Indication: HEPATOCELLULAR CARCINOMA
     Dosage: DAILY DOSE 400 MG
     Route: 048
     Dates: end: 201106
  20. DUROTEP [Concomitant]
     Active Substance: FENTANYL
     Dosage: DAILY DOSE 16.7999992 MG
     Route: 062
     Dates: start: 20091112
  21. MAGNESIUM OXIDE. [Concomitant]
     Active Substance: MAGNESIUM OXIDE
     Dosage: 0.5 G, TID
     Route: 048
     Dates: start: 20050903, end: 20121219

REACTIONS (7)
  - Rash [Recovering/Resolving]
  - Decreased appetite [None]
  - Metastases to spine [Recovering/Resolving]
  - Decreased appetite [Recovered/Resolved]
  - Hypoaesthesia [Recovering/Resolving]
  - Constipation [Not Recovered/Not Resolved]
  - Interstitial lung disease [Fatal]

NARRATIVE: CASE EVENT DATE: 200910
